FAERS Safety Report 11398556 (Version 1)
Quarter: 2015Q3

REPORT INFORMATION
  Report Type: Spontaneous
  Country: US (occurrence: None)
  Receive Date: 20150818
  Receipt Date: 20150818
  Transmission Date: 20151125
  Serious: Yes (Disabling)
  Sender: FDA-Public Use
  Company Number: None

PATIENT
  Age: 81 Year
  Sex: Female
  Weight: 62.14 kg

DRUGS (18)
  1. ATENOLOL. [Concomitant]
     Active Substance: ATENOLOL
  2. OFEV [Suspect]
     Active Substance: NINTEDANIB
     Indication: PROPHYLAXIS
     Dosage: 1 PILL
     Route: 048
     Dates: start: 20150720, end: 20150806
  3. VITAMIN D [Concomitant]
     Active Substance: CHOLECALCIFEROL
  4. LISINOPRIL. [Concomitant]
     Active Substance: LISINOPRIL
  5. VITAMIN C [Concomitant]
     Active Substance: ASCORBIC ACID
  6. PREDNISONE. [Concomitant]
     Active Substance: PREDNISONE
  7. REVATIO [Concomitant]
     Active Substance: SILDENAFIL CITRATE
  8. POTASSIUM [Concomitant]
     Active Substance: POTASSIUM
  9. FUROSEMIDE. [Concomitant]
     Active Substance: FUROSEMIDE
  10. OXYGEN CONCENTRATORS [Concomitant]
  11. OFEV [Suspect]
     Active Substance: NINTEDANIB
     Indication: SCAR
     Dosage: 1 PILL
     Route: 048
     Dates: start: 20150720, end: 20150806
  12. OMEPERAZOLE [Concomitant]
  13. TRAVATAN [Concomitant]
     Active Substance: TRAVOPROST
  14. COUMADIN [Concomitant]
     Active Substance: WARFARIN SODIUM
  15. CENTRUM [Concomitant]
     Active Substance: VITAMINS
  16. LEVOTHYROXINE. [Concomitant]
     Active Substance: LEVOTHYROXINE
  17. OFEV [Suspect]
     Active Substance: NINTEDANIB
     Indication: LUNG DISORDER
     Dosage: 1 PILL
     Route: 048
     Dates: start: 20150720, end: 20150806
  18. SIMVASTATIN. [Concomitant]
     Active Substance: SIMVASTATIN

REACTIONS (5)
  - Heart rate increased [None]
  - Atrial fibrillation [None]
  - Diarrhoea [None]
  - Nausea [None]
  - Paraesthesia [None]

NARRATIVE: CASE EVENT DATE: 20150812
